FAERS Safety Report 13478960 (Version 1)
Quarter: 2017Q2

REPORT INFORMATION
  Report Type: Spontaneous
  Country: US (occurrence: US)
  Receive Date: 20170425
  Receipt Date: 20170425
  Transmission Date: 20170830
  Serious: Yes (Disabling)
  Sender: FDA-Public Use
  Company Number: None

PATIENT
  Age: 86 Year
  Sex: Female
  Weight: 63.56 kg

DRUGS (20)
  1. EPA [Concomitant]
  2. GINSENG [Concomitant]
     Active Substance: ASIAN GINSENG
  3. MYRBETRIQ [Suspect]
     Active Substance: MIRABEGRON
     Indication: HYPERTONIC BLADDER
     Dates: start: 20170224, end: 20170322
  4. DHA [Concomitant]
     Active Substance: DIETARY SUPPLEMENT
  5. MOMETASONE NASAL SPRAY [Concomitant]
  6. E [Concomitant]
  7. VITAMIN B12 [Concomitant]
     Active Substance: CYANOCOBALAMIN
  8. CHONDROITIN SULFATE [Concomitant]
     Active Substance: SODIUM CHONDROITIN SULFATE
  9. LEVOTHYROXINE SODIUM. [Concomitant]
     Active Substance: LEVOTHYROXINE SODIUM
  10. ATORVASTATIN [Concomitant]
     Active Substance: ATORVASTATIN
  11. OMEGA FISH OIL [Concomitant]
     Active Substance: FISH OIL\OMEGA-3 FATTY ACIDS
  12. ESTRADIOL VALERATE. [Concomitant]
     Active Substance: ESTRADIOL VALERATE
  13. DIGOXIN. [Concomitant]
     Active Substance: DIGOXIN
  14. OXYBUTYNIN [Concomitant]
     Active Substance: OXYBUTYNIN
  15. VITAMIN D3 [Concomitant]
     Active Substance: CHOLECALCIFEROL
  16. GLUCOSAMINE [Concomitant]
     Active Substance: GLUCOSAMINE
  17. FUROSEMIDE. [Concomitant]
     Active Substance: FUROSEMIDE
  18. WARFARIN [Concomitant]
     Active Substance: WARFARIN
  19. ROSE HIP [Concomitant]
  20. GINKO BILOBA [Concomitant]
     Active Substance: GINKGO

REACTIONS (4)
  - Eye pain [None]
  - Dry eye [None]
  - Dry mouth [None]
  - Eye inflammation [None]

NARRATIVE: CASE EVENT DATE: 20170322
